FAERS Safety Report 9775954 (Version 2)
Quarter: 2014Q1

REPORT INFORMATION
  Report Type: Spontaneous
  Country: US (occurrence: US)
  Receive Date: 20131220
  Receipt Date: 20140121
  Transmission Date: 20141002
  Serious: Yes (Other)
  Sender: FDA-Public Use
  Company Number: US-BAYER-2013-153805

PATIENT
  Age: 32 Year
  Sex: Female

DRUGS (1)
  1. MIRENA [Suspect]
     Indication: CONTRACEPTION
     Dosage: 20 MCG/24HR, CONT
     Route: 015
     Dates: start: 201212, end: 20131203

REACTIONS (8)
  - Post procedural haemorrhage [Recovered/Resolved]
  - Medical device discomfort [Recovered/Resolved]
  - Fatigue [Recovered/Resolved]
  - Mood altered [Recovered/Resolved]
  - Abdominal distension [Recovered/Resolved]
  - Weight increased [None]
  - Adnexa uteri pain [Recovered/Resolved]
  - Vulvovaginal discomfort [Recovered/Resolved]
